FAERS Safety Report 4821148-3 (Version None)
Quarter: 2005Q4

REPORT INFORMATION
  Report Type: 
  Country: None (occurrence: None)
  Receive Date: 20051103
  Receipt Date: 20051026
  Transmission Date: 20060501
  Serious: Yes (Hospitalization, Disabling, Other)
  Sender: FDA-Public Use
  Company Number: 2005146937

PATIENT
  Age: 68 Year
  Sex: Female
  Weight: 108.4097 kg

DRUGS (9)
  1. CELEBREX [Suspect]
     Indication: OSTEOARTHRITIS
     Dosage: 400 MG (200 MG, 2 IN 1 D)
  2. ALL THERAPEUTIC PRODUCTS (ALL OTHER THERAPEUTIC PRODUCTS) [Concomitant]
  3. NEXIUM [Concomitant]
  4. NEURONTIN [Concomitant]
  5. PHENERGAN ^AVENTIS PHARMA^ (PROMETHAZINE HYDROCHLORIDE) [Concomitant]
  6. PROZAC [Concomitant]
  7. FLEXERIL [Concomitant]
  8. PROCARDIA XL [Concomitant]
  9. SALAGEN [Concomitant]

REACTIONS (7)
  - BONE DENSITY DECREASED [None]
  - CONDITION AGGRAVATED [None]
  - DRUG EFFECT DECREASED [None]
  - HIP ARTHROPLASTY [None]
  - KNEE OPERATION [None]
  - OSTEOARTHRITIS [None]
  - SURGERY [None]
